FAERS Safety Report 5670772-7 (Version None)
Quarter: 2008Q1

REPORT INFORMATION
  Report Type: 
  Country: None (occurrence: None)
  Receive Date: 20080318
  Receipt Date: 20080310
  Transmission Date: 20080703
  Serious: Yes (Other)
  Sender: FDA-Public Use
  Company Number: US-ROCHE-552305

PATIENT
  Age: 72 Year
  Sex: Female
  Weight: 89.4 kg

DRUGS (6)
  1. BONIVA [Suspect]
     Indication: OSTEOPOROSIS
     Route: 065
  2. SYNTHROID [Concomitant]
  3. VYTORIN [Concomitant]
  4. COREG [Concomitant]
  5. GLIMEPIRIDE [Concomitant]
  6. IMDUR [Concomitant]

REACTIONS (1)
  - CARDIAC FAILURE CONGESTIVE [None]
